FAERS Safety Report 13477986 (Version 1)
Quarter: 2017Q2

REPORT INFORMATION
  Report Type: Spontaneous
  Country: IT (occurrence: IT)
  Receive Date: 20170425
  Receipt Date: 20170425
  Transmission Date: 20170830
  Serious: Yes (Hospitalization, Other)
  Sender: FDA-Public Use
  Company Number: IT-MYLANLABS-2017M1021391

PATIENT

DRUGS (1)
  1. DICLOFENAC [Suspect]
     Active Substance: DICLOFENAC
     Indication: ANTIINFLAMMATORY THERAPY

REACTIONS (3)
  - Acute kidney injury [Recovering/Resolving]
  - Autoimmune haemolytic anaemia [Recovering/Resolving]
  - Hepatic function abnormal [Recovering/Resolving]
